FAERS Safety Report 14986154 (Version 1)
Quarter: 2018Q2

REPORT INFORMATION
  Report Type: Report from Study
  Country: CA (occurrence: CA)
  Receive Date: 20180607
  Receipt Date: 20180607
  Transmission Date: 20180711
  Serious: Yes (Death, Other)
  Sender: FDA-Public Use
  Company Number: PHHY2013CA030887

PATIENT
  Age: 85 Year
  Sex: Female

DRUGS (4)
  1. SANDOSTATIN [Suspect]
     Active Substance: OCTREOTIDE ACETATE
     Indication: NEUROENDOCRINE TUMOUR
     Dosage: 100 UG, ONCE/SINGLE
     Route: 058
     Dates: start: 20130201, end: 20130201
  2. LASIX [Concomitant]
     Active Substance: FUROSEMIDE
     Indication: PRODUCT USED FOR UNKNOWN INDICATION
     Dosage: UNK UNK, QW3 (3 TIMES A WEEK)
     Route: 065
  3. CODEINE [Suspect]
     Active Substance: CODEINE
     Indication: PRODUCT USED FOR UNKNOWN INDICATION
     Route: 065
  4. SANDOSTATIN LAR DEPOT [Suspect]
     Active Substance: OCTREOTIDE ACETATE
     Indication: NEUROENDOCRINE TUMOUR
     Dosage: 30 MG, QMO (EVERY 4 WEEKS)
     Route: 030
     Dates: start: 20130222

REACTIONS (16)
  - Blood pressure increased [Unknown]
  - Renal failure [Unknown]
  - Death [Fatal]
  - Blood pressure systolic increased [Unknown]
  - Wrist fracture [Unknown]
  - Body temperature decreased [Unknown]
  - Cough [Unknown]
  - Musculoskeletal stiffness [Unknown]
  - Blood albumin increased [Unknown]
  - Viral infection [Recovered/Resolved]
  - Influenza [Recovered/Resolved]
  - Heart rate decreased [Unknown]
  - Asthenia [Unknown]
  - Oedema [Unknown]
  - Malaise [Unknown]
  - Feeling cold [Unknown]

NARRATIVE: CASE EVENT DATE: 20140416
